FAERS Safety Report 17692491 (Version 2)
Quarter: 2020Q2

REPORT INFORMATION
  Report Type: Report from Study
  Country: US (occurrence: US)
  Receive Date: 20200422
  Receipt Date: 20200520
  Transmission Date: 20200714
  Serious: No
  Sender: FDA-Public Use
  Company Number: US-KYOWAKIRIN-2020BKK006173

PATIENT

DRUGS (10)
  1. NOURIANZ [Suspect]
     Active Substance: ISTRADEFYLLINE
     Dosage: 40 MG, DAILY
     Route: 065
     Dates: start: 20200415
  2. AZILECT [Concomitant]
     Active Substance: RASAGILINE MESYLATE
     Indication: PRODUCT USED FOR UNKNOWN INDICATION
     Dosage: UNK
     Route: 065
  3. XTAMPZA ER [Concomitant]
     Active Substance: OXYCODONE
     Dosage: 27 MG, BID
     Route: 065
  4. CARBIDOPA/LEVODOPA [Concomitant]
     Active Substance: CARBIDOPA\LEVODOPA
     Indication: PRODUCT USED FOR UNKNOWN INDICATION
     Dosage: UNK
     Route: 065
  5. ATENOLOL. [Concomitant]
     Active Substance: ATENOLOL
     Indication: PRODUCT USED FOR UNKNOWN INDICATION
     Dosage: UNK
     Route: 065
  6. NOURIANZ [Suspect]
     Active Substance: ISTRADEFYLLINE
     Indication: PARKINSON^S DISEASE
     Dosage: 20 MG, DAILY
     Route: 065
     Dates: start: 202002, end: 20200415
  7. CONTINE [MEMANTINE HYDROCHLORIDE] [Concomitant]
     Indication: PRODUCT USED FOR UNKNOWN INDICATION
     Dosage: UNK
     Route: 065
  8. SENNA TABS [Concomitant]
     Active Substance: SENNOSIDES A AND B
     Indication: FAECES HARD
     Dosage: UNK
     Route: 065
  9. MIRAPEX [Concomitant]
     Active Substance: PRAMIPEXOLE DIHYDROCHLORIDE
     Indication: PRODUCT USED FOR UNKNOWN INDICATION
     Dosage: UNK
     Route: 065
  10. XTAMPZA ER [Concomitant]
     Active Substance: OXYCODONE
     Indication: PAIN
     Dosage: 9 MG, BID
     Route: 065

REACTIONS (3)
  - Therapy non-responder [Unknown]
  - Freezing phenomenon [Unknown]
  - Dyskinesia [Unknown]

NARRATIVE: CASE EVENT DATE: 2020
